FAERS Safety Report 9232028 (Version 1)
Quarter: 2013Q2

REPORT INFORMATION
  Report Type: Spontaneous
  Country: US (occurrence: US)
  Receive Date: 20130415
  Receipt Date: 20130415
  Transmission Date: 20140414
  Serious: No
  Sender: FDA-Public Use
  Company Number: US-TEVA-397501USA

PATIENT
  Age: 91 Year
  Sex: Female
  Weight: 49.49 kg

DRUGS (10)
  1. NUVIGIL [Suspect]
     Indication: SOMNOLENCE
     Dates: start: 20130409
  2. NUVIGIL [Suspect]
     Indication: DEPRESSED MOOD
  3. SYNTHROID [Concomitant]
     Indication: HYPOTHYROIDISM
     Dosage: 150 MICROGRAM DAILY;
     Route: 048
  4. MUCINEX [Concomitant]
     Indication: COUGH
     Dosage: 1200 MILLIGRAM DAILY;
     Route: 048
  5. BYSTOLIC [Concomitant]
     Indication: CARDIAC DISORDER
     Dosage: 7.5 MILLIGRAM DAILY;
     Route: 048
  6. CARDIZEM [Concomitant]
     Indication: CARDIAC DISORDER
     Dosage: 180 MILLIGRAM DAILY;
     Route: 048
  7. COUMADIN [Concomitant]
     Indication: CARDIAC DISORDER
     Dosage: 5 MILLIGRAM DAILY;
     Route: 048
  8. POTASSIUM [Concomitant]
     Indication: MINERAL SUPPLEMENTATION
     Dosage: 20 MILLIEQUIVALENTS DAILY;
     Route: 048
  9. FUROSEMIDE [Concomitant]
     Indication: CARDIAC DISORDER
     Dosage: 20 MILLIGRAM DAILY;
     Route: 048
  10. DIGOXIN [Concomitant]
     Indication: CARDIAC DISORDER
     Dosage: 125 MICROGRAM DAILY;
     Route: 048

REACTIONS (2)
  - Vision blurred [Not Recovered/Not Resolved]
  - Off label use [Unknown]
